FAERS Safety Report 6182171-2 (Version None)
Quarter: 2009Q2

REPORT INFORMATION
  Report Type: 
  Country: None (occurrence: None)
  Receive Date: 20090505
  Receipt Date: 20090428
  Transmission Date: 20091009
  Serious: Yes (Death)
  Sender: FDA-Public Use
  Company Number: 2009JP002513

PATIENT
  Age: 63 Year
  Sex: Male

DRUGS (7)
  1. TACROLIMUS [Suspect]
     Indication: LUNG TRANSPLANT
  2. MYCOPHENOLATE MOFETIL [Concomitant]
  3. PREDNISONE TAB [Concomitant]
  4. CEFEPIME [Concomitant]
  5. VANCOMYCIN [Concomitant]
  6. FLUCONAZOLE [Concomitant]
  7. GANCICLOVIR [Concomitant]

REACTIONS (4)
  - CARDIAC ARREST [None]
  - INFECTION [None]
  - PNEUMOTHORAX [None]
  - RESPIRATORY ARREST [None]
